FAERS Safety Report 9440608 (Version 1)
Quarter: 2013Q3

REPORT INFORMATION
  Report Type: Spontaneous
  Country: DE (occurrence: DE)
  Receive Date: 20130805
  Receipt Date: 20130805
  Transmission Date: 20140515
  Serious: Yes (Other)
  Sender: FDA-Public Use
  Company Number: DE-TEVA-423067GER

PATIENT
  Sex: Male

DRUGS (1)
  1. COPAXONE [Suspect]

REACTIONS (2)
  - Road traffic accident [Recovered/Resolved]
  - Nuclear magnetic resonance imaging abnormal [Unknown]
